FAERS Safety Report 18634161 (Version 1)
Quarter: 2020Q4

REPORT INFORMATION
  Report Type: Spontaneous
  Country: GB (occurrence: GB)
  Receive Date: 20201218
  Receipt Date: 20201218
  Transmission Date: 20210114
  Serious: Yes (Other)
  Sender: FDA-Public Use
  Company Number: GB-GLAXOSMITHKLINE-GB2020EME246327

PATIENT

DRUGS (5)
  1. BENRALIZUMAB. [Suspect]
     Active Substance: BENRALIZUMAB
     Indication: PRODUCT USED FOR UNKNOWN INDICATION
     Dosage: UNK
  2. NUCALA [Suspect]
     Active Substance: MEPOLIZUMAB
     Indication: ASTHMA
     Dosage: UNK
  3. AZATHIOPRINE. [Suspect]
     Active Substance: AZATHIOPRINE
     Indication: ASTHMA
     Dosage: UNK
  4. RESLIZUMAB [Suspect]
     Active Substance: RESLIZUMAB
     Indication: PRODUCT USED FOR UNKNOWN INDICATION
     Dosage: UNK
  5. TRIAMCINOLONE [Suspect]
     Active Substance: TRIAMCINOLONE
     Indication: PRODUCT USED FOR UNKNOWN INDICATION
     Dosage: UNK

REACTIONS (8)
  - Bronchiectasis [Unknown]
  - Lung infiltration [Unknown]
  - Malaise [Unknown]
  - Asthma [Unknown]
  - Abdominal discomfort [Not Recovered/Not Resolved]
  - Mental disorder [Unknown]
  - Therapeutic product effect incomplete [Unknown]
  - Anaphylactic reaction [Unknown]
